FAERS Safety Report 4356091-X (Version None)
Quarter: 2004Q2

REPORT INFORMATION
  Report Type: 
  Country: None (occurrence: None)
  Receive Date: 20040511
  Receipt Date: 20040206
  Transmission Date: 20050107
  Serious: Yes (Hospitalization, Other)
  Sender: FDA-Public Use
  Company Number: US-GLAXOSMITHKLINE-A0497344A

PATIENT
  Age: 27 Year
  Sex: Female
  Weight: 52.3 kg

DRUGS (3)
  1. LAMICTAL [Suspect]
     Indication: BIPOLAR DISORDER
     Dosage: 25MG UNKNOWN
     Route: 048
     Dates: start: 20040113, end: 20040206
  2. ORAL CONTRACEPTIVE [Concomitant]
     Dates: end: 20040206
  3. CIPROFLOXACIN [Concomitant]

REACTIONS (17)
  - ABDOMINAL DISCOMFORT [None]
  - ABDOMINAL PAIN UPPER [None]
  - ABNORMAL FAECES [None]
  - BLOOD BILIRUBIN INCREASED [None]
  - DECREASED APPETITE [None]
  - DIARRHOEA [None]
  - FAECES DISCOLOURED [None]
  - FLATULENCE [None]
  - HEPATIC ENZYME INCREASED [None]
  - HEPATOTOXICITY [None]
  - HYPERSENSITIVITY [None]
  - JAUNDICE [None]
  - NAUSEA [None]
  - OCULAR ICTERUS [None]
  - PANCREATIC ENZYMES INCREASED [None]
  - PRURITUS [None]
  - URINE ABNORMALITY [None]
